FAERS Safety Report 20971695 (Version 5)
Quarter: 2022Q4

REPORT INFORMATION
  Report Type: Spontaneous
  Country: US (occurrence: US)
  Receive Date: 20220616
  Receipt Date: 20221006
  Transmission Date: 20230113
  Serious: No
  Sender: FDA-Public Use
  Company Number: US-SA-SAC20220608000974

PATIENT
  Age: 58 Year
  Sex: Male
  Weight: 80 kg

DRUGS (20)
  1. FABRAZYME [Suspect]
     Active Substance: AGALSIDASE BETA
     Indication: Pulmonary arterial hypertension
     Dosage: 80 MG, QOW
     Route: 042
     Dates: start: 20170202
  2. FABRAZYME [Suspect]
     Active Substance: AGALSIDASE BETA
     Indication: Lipidosis
  3. EPINEPHRINE [Concomitant]
     Active Substance: EPINEPHRINE
     Dosage: UNK
     Route: 065
  4. CIALIS [Concomitant]
     Active Substance: TADALAFIL
     Dosage: UNK
     Route: 065
  5. STERILE WATER [Concomitant]
     Active Substance: WATER
     Dosage: UNK
     Route: 065
  6. ZINC [Concomitant]
     Active Substance: ZINC
     Dosage: UNK
     Route: 065
  7. AMITRIPTYLINE HYDROCHLORIDE [Concomitant]
     Active Substance: AMITRIPTYLINE HYDROCHLORIDE
     Dosage: UNK
     Route: 065
  8. SODIUM CHLORIDE [Concomitant]
     Active Substance: SODIUM CHLORIDE
     Dosage: UNK
     Route: 065
  9. NITROGLYCERIN [Concomitant]
     Active Substance: NITROGLYCERIN
     Dosage: UNK
     Route: 060
  10. ASPIRIN [Concomitant]
     Active Substance: ASPIRIN
     Dosage: UNK
     Route: 065
  11. ACETAMINOPHEN [Concomitant]
     Active Substance: ACETAMINOPHEN
     Dosage: UNK
     Route: 065
  12. CALCIUM [Concomitant]
     Active Substance: CALCIUM
     Dosage: UNK
     Route: 065
  13. LOSARTAN POTASSIUM [Concomitant]
     Active Substance: LOSARTAN POTASSIUM
     Dosage: UNK
     Route: 065
  14. MIRALAX [Concomitant]
     Active Substance: POLYETHYLENE GLYCOL 3350
     Dosage: UNK
     Route: 065
  15. FINASTERIDE [Concomitant]
     Active Substance: FINASTERIDE
     Dosage: UNK
     Route: 065
  16. VITAMIN D3 [Concomitant]
     Active Substance: CHOLECALCIFEROL
     Dosage: UNK
     Route: 065
  17. SODIUM CHLORIDE [Concomitant]
     Active Substance: SODIUM CHLORIDE
     Dosage: UNK
     Route: 065
  18. VITAMINS NOS [Concomitant]
     Active Substance: VITAMINS
     Dosage: UNK
     Route: 065
  19. MAGNESIUM [Concomitant]
     Active Substance: MAGNESIUM
     Dosage: UNK
     Route: 065
  20. STOOL SOFTENER (DOCUSATE) [Concomitant]
     Active Substance: DOCUSATE

REACTIONS (9)
  - Weight increased [Unknown]
  - COVID-19 [Not Recovered/Not Resolved]
  - Cough [Recovering/Resolving]
  - Fatigue [Recovering/Resolving]
  - Respiratory tract congestion [Not Recovered/Not Resolved]
  - Headache [Recovering/Resolving]
  - Cough [Unknown]
  - Headache [Unknown]
  - Product use in unapproved indication [Unknown]

NARRATIVE: CASE EVENT DATE: 20170202
